FAERS Safety Report 8273613-7 (Version None)
Quarter: 2012Q2

REPORT INFORMATION
  Report Type: 
  Country: None (occurrence: None)
  Receive Date: 20120411
  Receipt Date: 20120131
  Transmission Date: 20120825
  Serious: No
  Sender: FDA-Public Use
  Company Number: US-TEVA-320485USA

PATIENT
  Sex: Female
  Weight: 81.72 kg

DRUGS (4)
  1. NUVIGIL [Suspect]
     Indication: SOMNOLENCE
     Dosage: QAM
     Route: 048
     Dates: start: 20100101, end: 20100101
  2. ARIPIPRAZOLE [Concomitant]
     Indication: BIPOLAR DISORDER
     Dosage: QPM
     Route: 048
     Dates: start: 20110501
  3. NORTRIPTYLINE HCL [Concomitant]
     Indication: MIGRAINE
     Dosage: QPM
     Route: 048
     Dates: start: 20090101
  4. SERTRALINE HYDROCHLORIDE [Concomitant]
     Indication: BIPOLAR DISORDER
     Dosage: QD
     Route: 048
     Dates: end: 20111201

REACTIONS (2)
  - MANIA [None]
  - INSOMNIA [None]
